FAERS Safety Report 25097816 (Version 1)
Quarter: 2025Q1

REPORT INFORMATION
  Report Type: Spontaneous
  Country: US (occurrence: US)
  Receive Date: 20250320
  Receipt Date: 20250320
  Transmission Date: 20250409
  Serious: No
  Sender: ROCHE
  Company Number: US-ROCHE-10000228917

PATIENT
  Age: 50 Year
  Sex: Female
  Weight: 76.2 kg

DRUGS (4)
  1. VABYSMO [Suspect]
     Active Substance: FARICIMAB-SVOA
     Indication: Diabetic retinopathy
     Route: 050
     Dates: start: 20240912
  2. VABYSMO [Suspect]
     Active Substance: FARICIMAB-SVOA
     Indication: Diabetic retinal oedema
  3. LUCENTIS [Suspect]
     Active Substance: RANIBIZUMAB
     Indication: Diabetic retinopathy
     Route: 050
     Dates: start: 20240326, end: 202404
  4. LUCENTIS [Suspect]
     Active Substance: RANIBIZUMAB
     Indication: Diabetic retinal oedema

REACTIONS (7)
  - Vitreous floaters [Unknown]
  - Visual impairment [Unknown]
  - Corneal abrasion [Recovered/Resolved]
  - Intraocular pressure increased [Recovering/Resolving]
  - Optic neuritis [Recovering/Resolving]
  - Off label use [Unknown]
  - Off label use [Unknown]

NARRATIVE: CASE EVENT DATE: 20240912
